FAERS Safety Report 5533531-1 (Version None)
Quarter: 2007Q4

REPORT INFORMATION
  Report Type: 
  Country: None (occurrence: None)
  Receive Date: 20071204
  Receipt Date: 20071128
  Transmission Date: 20080405
  Serious: Yes (Other)
  Sender: FDA-Public Use
  Company Number: GB-PFIZER INC-2007100804

PATIENT
  Age: 40 Year
  Sex: Female
  Weight: 79 kg

DRUGS (3)
  1. CHAMPIX [Suspect]
     Indication: SMOKING CESSATION THERAPY
     Route: 048
     Dates: start: 20071004, end: 20071101
  2. DEPIXOL [Concomitant]
     Dosage: TEXT:50 MG
     Route: 030
  3. SEROQUEL [Concomitant]
     Dosage: TEXT:200 MG
     Route: 048

REACTIONS (3)
  - INAPPROPRIATE AFFECT [None]
  - LIBIDO INCREASED [None]
  - MANIA [None]
